FAERS Safety Report 17519058 (Version 1)
Quarter: 2020Q1

REPORT INFORMATION
  Report Type: Spontaneous
  Country: US (occurrence: US)
  Receive Date: 20200310
  Receipt Date: 20200310
  Transmission Date: 20200409
  Serious: Yes (Other)
  Sender: FDA-Public Use
  Company Number: US-ASTRAZENECA-2020SE31960

PATIENT
  Age: 68 Year
  Sex: Female
  Weight: 72.1 kg

DRUGS (48)
  1. OMEPRAZOLE. [Suspect]
     Active Substance: OMEPRAZOLE
     Indication: GASTRIC ULCER
     Route: 065
     Dates: start: 2009, end: 2014
  2. TRAMADOL. [Concomitant]
     Active Substance: TRAMADOL
     Indication: PAIN
     Dates: start: 2004
  3. CELEBREX [Concomitant]
     Active Substance: CELECOXIB
     Indication: ANXIETY
  4. LEFLUNOMIDE. [Concomitant]
     Active Substance: LEFLUNOMIDE
  5. LASIX [Concomitant]
     Active Substance: FUROSEMIDE
  6. PREVACID [Suspect]
     Active Substance: LANSOPRAZOLE
     Indication: GASTRIC ULCER
     Route: 065
     Dates: start: 20051028
  7. ACTEMRA [Concomitant]
     Active Substance: TOCILIZUMAB
     Dates: start: 2012
  8. COUMADIN [Concomitant]
     Active Substance: WARFARIN SODIUM
  9. NITROGLYCERIN. [Concomitant]
     Active Substance: NITROGLYCERIN
  10. NITROFURANTOIN. [Concomitant]
     Active Substance: NITROFURANTOIN
     Indication: CHEST PAIN
     Dates: start: 20061009
  11. PREDNISONE. [Concomitant]
     Active Substance: PREDNISONE
     Indication: ANXIETY
     Dates: start: 20080322
  12. FOLIC ACID. [Concomitant]
     Active Substance: FOLIC ACID
     Dates: start: 2006
  13. VITAMIN D3 [Concomitant]
     Active Substance: CHOLECALCIFEROL
     Indication: VITAMIN D DECREASED
     Dates: start: 2015
  14. BIOTIN [Concomitant]
     Active Substance: BIOTIN
     Indication: ALOPECIA
     Dates: start: 2010
  15. CETIRIZINE HYDROCHLORIDE. [Concomitant]
     Active Substance: CETIRIZINE HYDROCHLORIDE
     Indication: MULTIPLE ALLERGIES
     Dates: start: 2015
  16. PREDNISONE. [Concomitant]
     Active Substance: PREDNISONE
     Dosage: ORAL TABLET
  17. CLOPIDOGREL [Concomitant]
     Active Substance: CLOPIDOGREL BISULFATE
  18. VOLTAREN [Concomitant]
     Active Substance: DICLOFENAC SODIUM
  19. ASPIRIN. [Concomitant]
     Active Substance: ASPIRIN
  20. PREVACID [Suspect]
     Active Substance: LANSOPRAZOLE
     Indication: GASTRIC ULCER
     Route: 065
     Dates: start: 2005, end: 2009
  21. PREVACID [Suspect]
     Active Substance: LANSOPRAZOLE
     Indication: GASTRIC ULCER
     Dosage: GENERIC
     Route: 065
     Dates: start: 2015, end: 2016
  22. SULFASALAZINE. [Concomitant]
     Active Substance: SULFASALAZINE
  23. PHENAZOPYRIDINE. [Concomitant]
     Active Substance: PHENAZOPYRIDINE
  24. POTASSIUM CL [Concomitant]
     Active Substance: POTASSIUM CHLORIDE
  25. CALCIUM CARBONATE. [Concomitant]
     Active Substance: CALCIUM CARBONATE
     Indication: BLOOD CALCIUM DECREASED
     Dates: start: 1988
  26. METHOTREXATE. [Concomitant]
     Active Substance: METHOTREXATE
     Dates: start: 20071218
  27. DOXYCYCLINE. [Concomitant]
     Active Substance: DOXYCYCLINE
  28. SUCRALFATE. [Concomitant]
     Active Substance: SUCRALFATE
  29. FAMOTIDINE. [Concomitant]
     Active Substance: FAMOTIDINE
  30. ZITHROMAX [Concomitant]
     Active Substance: AZITHROMYCIN DIHYDRATE
  31. OMEPRAZOLE. [Suspect]
     Active Substance: OMEPRAZOLE
     Indication: PAIN
     Route: 065
     Dates: start: 2009, end: 2014
  32. MAALOX ANTACID [Concomitant]
     Active Substance: ALUMINUM HYDROXIDE\DIMETHICONE\MAGNESIUM HYDROXIDE
  33. ISORBID [Concomitant]
     Active Substance: ISOSORBIDE DINITRATE
     Dosage: ORAL TABLET
  34. PREMARIN [Concomitant]
     Active Substance: ESTROGENS, CONJUGATED
     Dosage: 0.625MG/G
  35. PREVACID [Suspect]
     Active Substance: LANSOPRAZOLE
     Indication: PAIN
     Route: 065
     Dates: start: 2005, end: 2009
  36. PREVACID [Suspect]
     Active Substance: LANSOPRAZOLE
     Indication: PAIN
     Dosage: GENERIC
     Route: 065
     Dates: start: 2015, end: 2016
  37. PREVACID [Suspect]
     Active Substance: LANSOPRAZOLE
     Indication: PAIN
     Route: 065
     Dates: start: 20051028
  38. CIMETIDINE [Concomitant]
     Active Substance: CIMETIDINE
     Indication: ABDOMINAL DISCOMFORT
  39. URI SPAS [Concomitant]
     Indication: NEOPLASM MALIGNANT
  40. METOPROLOL TARTRATE. [Concomitant]
     Active Substance: METOPROLOL TARTRATE
  41. WARFARIN [Concomitant]
     Active Substance: WARFARIN
  42. PANTOPRAZOLE [Suspect]
     Active Substance: PANTOPRAZOLE
     Indication: GASTRIC ULCER
     Dosage: TWO TIMES A DAY
     Route: 065
     Dates: start: 201412
  43. PANTOPRAZOLE [Suspect]
     Active Substance: PANTOPRAZOLE
     Indication: PAIN
     Dosage: TWO TIMES A DAY
     Route: 065
     Dates: start: 201412
  44. DIAZEPAM. [Concomitant]
     Active Substance: DIAZEPAM
     Indication: ANXIETY
     Dates: start: 1985
  45. OXYTROL [Concomitant]
     Active Substance: OXYBUTYNIN
     Indication: NEOPLASM MALIGNANT
     Dates: start: 20050609
  46. CIPROFLOXACIN. [Concomitant]
     Active Substance: CIPROFLOXACIN
     Dates: start: 20090406
  47. CLOTRIMAZOLE AND BETAMETHASONE DIPROPIONATE [Concomitant]
     Active Substance: BETAMETHASONE\BETAMETHASONE DIPROPIONATE\CLOTRIMAZOLE
  48. LISINOPRIL. [Concomitant]
     Active Substance: LISINOPRIL

REACTIONS (5)
  - End stage renal disease [Unknown]
  - Renal failure [Unknown]
  - Hyperparathyroidism secondary [Unknown]
  - Chronic kidney disease [Not Recovered/Not Resolved]
  - Acute kidney injury [Unknown]

NARRATIVE: CASE EVENT DATE: 2008
